FAERS Safety Report 7941964-9 (Version None)
Quarter: 2011Q4

REPORT INFORMATION
  Report Type: 
  Country: None (occurrence: None)
  Receive Date: 20111122
  Receipt Date: 20111108
  Transmission Date: 20120403
  Serious: Yes (Hospitalization)
  Sender: FDA-Public Use
  Company Number: AXC-2011-000485

PATIENT
  Sex: Female
  Weight: 1.1 kg

DRUGS (6)
  1. PROPRANOLOL [Suspect]
     Indication: FOETAL EXPOSURE DURING PREGNANCY
  2. THIOPENTAL SODIUM [Suspect]
     Indication: FOETAL EXPOSURE DURING PREGNANCY
     Dosage: 350 MG
  3. DESFLURANE [Suspect]
     Indication: FOETAL EXPOSURE DURING PREGNANCY
     Dosage: 40 MG
  4. URSODEOXYCHOLIC ACID (URSODEOXYCHOLIC ACID) UNKNOWN [Suspect]
     Indication: FOETAL EXPOSURE DURING PREGNANCY
     Dosage: 600 MG, SINGLE
  5. ATRACURIUM BESYLATE [Suspect]
     Indication: FOETAL EXPOSURE DURING PREGNANCY
     Dosage: 40 MG
  6. SUCCINYLCHOLINE CHLORIDE [Concomitant]

REACTIONS (5)
  - GENE MUTATION [None]
  - FOETAL EXPOSURE DURING PREGNANCY [None]
  - SMALL FOR DATES BABY [None]
  - PREMATURE BABY [None]
  - BREECH PRESENTATION [None]
